FAERS Safety Report 22633532 (Version 1)
Quarter: 2023Q2

REPORT INFORMATION
  Report Type: Spontaneous
  Country: FR (occurrence: FR)
  Receive Date: 20230623
  Receipt Date: 20230623
  Transmission Date: 20230721
  Serious: Yes (Hospitalization)
  Sender: FDA-Public Use
  Company Number: None

PATIENT
  Age: 50 Year
  Sex: Male
  Weight: 88 kg

DRUGS (6)
  1. ENTYVIO [Suspect]
     Active Substance: VEDOLIZUMAB
     Indication: Crohn^s disease
     Dosage: 1 DOSAGE FORM
     Route: 042
     Dates: start: 20230306, end: 20230306
  2. ENTYVIO [Suspect]
     Active Substance: VEDOLIZUMAB
     Dosage: 1 DOSAGE FORM
     Route: 042
     Dates: start: 20230411, end: 20230411
  3. ENTYVIO [Suspect]
     Active Substance: VEDOLIZUMAB
     Dosage: 1 DOSAGE FORM
     Route: 042
     Dates: start: 20230509, end: 20230509
  4. Solupred [Concomitant]
     Dosage: 40 MILLIGRAM, QD
     Dates: start: 20221226, end: 20230109
  5. Solupred [Concomitant]
     Dosage: 20 MILLIGRAM, QD
     Dates: start: 20230207, end: 20230221
  6. Solupred [Concomitant]
     Dosage: 40 MILLIGRAM, QD
     Dates: start: 20230124, end: 20230207

REACTIONS (1)
  - Guillain-Barre syndrome [Recovering/Resolving]

NARRATIVE: CASE EVENT DATE: 20230401
